FAERS Safety Report 7373049-7 (Version None)
Quarter: 2011Q1

REPORT INFORMATION
  Report Type: 
  Country: None (occurrence: None)
  Receive Date: 20110324
  Receipt Date: 20110317
  Transmission Date: 20110831
  Serious: Yes (Other)
  Sender: FDA-Public Use
  Company Number: GB-TEVA-266500ISR

PATIENT
  Age: 44 Year
  Sex: Female

DRUGS (1)
  1. PREDNISOLONE [Suspect]
     Indication: ARTHRALGIA

REACTIONS (3)
  - CSF PROTEIN INCREASED [None]
  - PERIPHERAL SENSORY NEUROPATHY [None]
  - DEMYELINATION [None]
